FAERS Safety Report 7970353-6 (Version None)
Quarter: 2011Q4

REPORT INFORMATION
  Report Type: 
  Country: None (occurrence: None)
  Receive Date: 20111122
  Receipt Date: 20110815
  Transmission Date: 20120403
  Serious: No
  Sender: FDA-Public Use
  Company Number: PHHY2011US07877

PATIENT
  Age: 59 Year
  Sex: Female

DRUGS (3)
  1. GILENYA [Suspect]
     Indication: MULTIPLE SCLEROSIS
     Dosage: 0.5 MG, QD, ORAL, 0.5 MG, TWICE IN A WEEK, ORAL
     Route: 048
     Dates: start: 20101210
  2. TAGAMET [Concomitant]
  3. PEPTO-BISMOL (BISMUTH SUBSALICYLATE) [Concomitant]

REACTIONS (3)
  - DIARRHOEA [None]
  - NAUSEA [None]
  - DECREASED APPETITE [None]
